FAERS Safety Report 13349326 (Version 1)
Quarter: 2017Q1

REPORT INFORMATION
  Report Type: Spontaneous
  Country: FR (occurrence: FR)
  Receive Date: 20170320
  Receipt Date: 20170320
  Transmission Date: 20170428
  Serious: Yes (Other)
  Sender: FDA-Public Use
  Company Number: FR-009507513-1703FRA007858

PATIENT
  Sex: Male

DRUGS (4)
  1. FORTUM [Concomitant]
     Active Substance: CEFTAZIDIME
     Indication: PNEUMONIA PSEUDOMONAL
  2. VANCOMYCIN [Concomitant]
     Active Substance: VANCOMYCIN
     Indication: PNEUMONIA PSEUDOMONAL
  3. RIFAMPIN. [Concomitant]
     Active Substance: RIFAMPIN
     Indication: PNEUMONIA PSEUDOMONAL
  4. ZERBAXA [Suspect]
     Active Substance: CEFTOLOZANE SULFATE\TAZOBACTAM SODIUM
     Indication: PNEUMONIA PSEUDOMONAL
     Dosage: 1G/0.5G AT 6 DF, QD
     Dates: start: 20170310

REACTIONS (4)
  - Skin exfoliation [Unknown]
  - Hypersensitivity [Unknown]
  - Off label use [Unknown]
  - Rash [Unknown]

NARRATIVE: CASE EVENT DATE: 201703
